FAERS Safety Report 17289691 (Version 3)
Quarter: 2020Q3

REPORT INFORMATION
  Report Type: Spontaneous
  Country: US (occurrence: US)
  Receive Date: 20200120
  Receipt Date: 20200721
  Transmission Date: 20201102
  Serious: Yes (Other)
  Sender: FDA-Public Use
  Company Number: US-SHIRE-US202001490

PATIENT
  Age: 43 Year
  Sex: Female

DRUGS (1)
  1. NATPARA (PARATHYROID HORMONE) [Suspect]
     Active Substance: PARATHYROID HORMONE
     Indication: PRODUCT USED FOR UNKNOWN INDICATION
     Dosage: 100 MICROGRAM, UNKNOWN
     Route: 065

REACTIONS (6)
  - Foot fracture [Unknown]
  - Muscle spasms [Unknown]
  - Product dose omission issue [Recovered/Resolved]
  - Nasopharyngitis [Unknown]
  - Musculoskeletal discomfort [Unknown]
  - Limb injury [Unknown]

NARRATIVE: CASE EVENT DATE: 20191231
